FAERS Safety Report 7575240-3 (Version None)
Quarter: 2011Q2

REPORT INFORMATION
  Report Type: 
  Country: None (occurrence: None)
  Receive Date: 20110627
  Receipt Date: 20110622
  Transmission Date: 20111010
  Serious: Yes (Other)
  Sender: FDA-Public Use
  Company Number: US-CEPHALON-2011001496

PATIENT
  Sex: Female
  Weight: 68 kg

DRUGS (14)
  1. FENTANYL [Concomitant]
     Dates: start: 20080101
  2. FENTANYL CITRATE [Suspect]
     Indication: BENIGN INTRACRANIAL HYPERTENSION
     Route: 002
     Dates: start: 20070101
  3. EXCEDRIN (MIGRAINE) [Concomitant]
     Dates: start: 20060101
  4. KLONOPIN [Concomitant]
  5. CRESTOR [Concomitant]
     Dates: start: 20100101
  6. PROMETHAZINE [Concomitant]
     Dates: start: 19960101
  7. SODIUM BICARBONATE [Concomitant]
     Dates: start: 19900101
  8. ACIPHEX [Concomitant]
     Dates: start: 20000101
  9. MIRAPEX [Concomitant]
     Dates: start: 20010101
  10. CYCLOSPORINE [Concomitant]
     Dates: start: 19900101
  11. PREDNISONE [Concomitant]
     Dates: start: 19900101
  12. LORTAB [Concomitant]
     Dates: start: 20070101
  13. REGLAN [Concomitant]
     Dates: start: 20010101
  14. WARFARIN SODIUM [Concomitant]
     Dates: start: 20040101

REACTIONS (6)
  - DRUG PRESCRIBING ERROR [None]
  - THROMBOSIS [None]
  - ABNORMAL BEHAVIOUR [None]
  - TIC [None]
  - AMNESIA [None]
  - IMPULSIVE BEHAVIOUR [None]
